FAERS Safety Report 17065171 (Version 1)
Quarter: 2019Q4

REPORT INFORMATION
  Report Type: Spontaneous
  Country: US (occurrence: US)
  Receive Date: 20191024
  Receipt Date: 20191024
  Transmission Date: 20200122
  Serious: Yes (Hospitalization)
  Sender: FDA-Public Use
  Company Number: None

PATIENT
  Age: 43 Year
  Sex: Male

DRUGS (1)
  1. SILDENAFIL 20MG [Suspect]
     Active Substance: SILDENAFIL
     Indication: ERECTILE DYSFUNCTION
     Route: 048
     Dates: start: 20190322

REACTIONS (3)
  - Cardiac failure congestive [None]
  - Therapy cessation [None]
  - Liver disorder [None]

NARRATIVE: CASE EVENT DATE: 20191018
